FAERS Safety Report 7392948-3 (Version None)
Quarter: 2011Q2

REPORT INFORMATION
  Report Type: 
  Country: None (occurrence: None)
  Receive Date: 20110404
  Receipt Date: 20110331
  Transmission Date: 20111010
  Serious: Yes (Hospitalization)
  Sender: FDA-Public Use
  Company Number: DE-PFIZER INC-DE-WYE-H12204709

PATIENT
  Age: 56 Year
  Sex: Female
  Weight: 108 kg

DRUGS (5)
  1. PANTOPRAZOLE SODIUM [Suspect]
     Dosage: 40 MG, 2X/DAY
     Route: 048
     Dates: start: 20090918
  2. CLARITHROMYCIN [Interacting]
     Dosage: 500 MG, 2X/DAY
     Dates: start: 20090918, end: 20090921
  3. HYZAAR [Concomitant]
     Route: 048
  4. AMOXICILLIN [Interacting]
     Dosage: 1000 MG, 2X/DAY
     Route: 048
     Dates: start: 20090918, end: 20090921
  5. BISOPROLOL [Concomitant]
     Route: 048

REACTIONS (2)
  - DIARRHOEA HAEMORRHAGIC [None]
  - DRUG INTERACTION [None]
